FAERS Safety Report 23213592 (Version 1)
Quarter: 2023Q4

REPORT INFORMATION
  Report Type: Spontaneous
  Country: US (occurrence: US)
  Receive Date: 20231121
  Receipt Date: 20231121
  Transmission Date: 20240110
  Serious: No
  Sender: FDA-Public Use
  Company Number: US-TEVA-2023-US-2942897

PATIENT
  Age: 50 Year
  Sex: Female

DRUGS (1)
  1. ARMODAFINIL [Suspect]
     Active Substance: ARMODAFINIL
     Indication: Fatigue
     Route: 065
     Dates: start: 2017, end: 20231031

REACTIONS (6)
  - Nausea [Recovered/Resolved]
  - Hot flush [Recovered/Resolved]
  - Mydriasis [Recovered/Resolved]
  - Off label use [Unknown]
  - Product quality issue [Unknown]
  - Product packaging quantity issue [Unknown]

NARRATIVE: CASE EVENT DATE: 20231001
